FAERS Safety Report 11718031 (Version 1)
Quarter: 2015Q4

REPORT INFORMATION
  Report Type: Spontaneous
  Country: GB (occurrence: GB)
  Receive Date: 20151110
  Receipt Date: 20151110
  Transmission Date: 20160304
  Serious: Yes (Hospitalization, Disabling)
  Sender: FDA-Public Use
  Company Number: GB-TARO PHARMACEUTICALS USA.,INC-2015SUN02217

PATIENT
  Age: 66 Year
  Sex: Male

DRUGS (1)
  1. CARBAMAZEPINE. [Suspect]
     Active Substance: CARBAMAZEPINE
     Indication: EPILEPSY
     Dosage: UNK
     Route: 065

REACTIONS (5)
  - Osteomalacia [Recovering/Resolving]
  - Seizure [Unknown]
  - Vitamin D decreased [Recovering/Resolving]
  - Hypocalcaemia [Recovering/Resolving]
  - Fracture [Recovering/Resolving]
